FAERS Safety Report 13420451 (Version 1)
Quarter: 2017Q2

REPORT INFORMATION
  Report Type: Spontaneous
  Country: CA (occurrence: CA)
  Receive Date: 20170408
  Receipt Date: 20170408
  Transmission Date: 20170830
  Serious: Yes (Other)
  Sender: FDA-Public Use
  Company Number: CA-AMGEN-CANSP2014080434

PATIENT
  Age: 83 Year
  Sex: Female

DRUGS (2)
  1. CLONAZEPAM. [Concomitant]
     Active Substance: CLONAZEPAM
     Dosage: UNK, AT NIGHT
  2. PROLIA [Suspect]
     Active Substance: DENOSUMAB
     Indication: PRODUCT USED FOR UNKNOWN INDICATION
     Dosage: UNK
     Route: 065
     Dates: start: 20141010

REACTIONS (13)
  - Hyperhidrosis [Unknown]
  - Weight decreased [Unknown]
  - Localised oedema [Unknown]
  - Osteonecrosis of jaw [Unknown]
  - Femur fracture [Unknown]
  - Nausea [Unknown]
  - Dizziness [Unknown]
  - Tremor [Unknown]
  - Decreased appetite [Unknown]
  - Ill-defined disorder [Unknown]
  - Sleep disorder [Unknown]
  - Blood pressure increased [Unknown]
  - Pain [Unknown]

NARRATIVE: CASE EVENT DATE: 201410
